FAERS Safety Report 11994668 (Version 2)
Quarter: 2016Q1

REPORT INFORMATION
  Report Type: Spontaneous
  Country: US (occurrence: US)
  Receive Date: 20160203
  Receipt Date: 20160205
  Transmission Date: 20160526
  Serious: No
  Sender: FDA-Public Use
  Company Number: US-WATSON-2015-13784

PATIENT
  Sex: Female

DRUGS (1)
  1. ALPRAZOLAM (WATSON LABORATORIES) [Suspect]
     Active Substance: ALPRAZOLAM
     Indication: PRODUCT USED FOR UNKNOWN INDICATION
     Dosage: UNK, UNKNOWN
     Route: 065

REACTIONS (3)
  - Drug effect decreased [Unknown]
  - Incorrect product storage [Unknown]
  - Product substitution issue [Unknown]
